FAERS Safety Report 5160461-X (Version None)
Quarter: 2006Q4

REPORT INFORMATION
  Report Type: 
  Country: None (occurrence: None)
  Receive Date: 20061121
  Receipt Date: 20061106
  Transmission Date: 20070319
  Serious: Yes (Other)
  Sender: FDA-Public Use
  Company Number: 26018

PATIENT
  Age: 54 Year
  Sex: Male
  Weight: 95.2554 kg

DRUGS (8)
  1. NIASPAN [Suspect]
     Indication: BLOOD CHOLESTEROL INCREASED
     Dosage: 500 MG BID PO
     Route: 048
     Dates: start: 20060901, end: 20061104
  2. NORVASC [Concomitant]
  3. ALTACE [Concomitant]
  4. INDERAL [Concomitant]
  5. PLAVIX /UNK/ [Concomitant]
  6. VYTORIN [Concomitant]
  7. WELLBUTRIN [Concomitant]
  8. LAMICTAL [Concomitant]

REACTIONS (2)
  - FLUSHING [None]
  - HALLUCINATION [None]
